FAERS Safety Report 6433279-5 (Version None)
Quarter: 2009Q4

REPORT INFORMATION
  Report Type: 
  Country: None (occurrence: None)
  Receive Date: 20091109
  Receipt Date: 20091029
  Transmission Date: 20100525
  Serious: Yes (Other)
  Sender: FDA-Public Use
  Company Number: US-PFIZER INC-2009291939

PATIENT
  Sex: Female
  Weight: 81.633 kg

DRUGS (8)
  1. LYRICA [Suspect]
     Indication: FIBROMYALGIA
     Dosage: UNK
     Route: 048
     Dates: start: 20080101
  2. CELEBREX [Concomitant]
     Dosage: UNK
  3. CRESTOR [Concomitant]
  4. SINGULAIR [Concomitant]
     Indication: SINUS DISORDER
     Dosage: UNK
  5. ACETYLSALICYLIC ACID [Concomitant]
     Dosage: UNK
  6. CICLESONIDE [Concomitant]
     Dosage: UNK
  7. ASTELIN [Concomitant]
     Dosage: UNK
  8. OMEPRAZOLE [Concomitant]
     Dosage: UNK

REACTIONS (3)
  - BLOOD CHOLESTEROL INCREASED [None]
  - VENOUS INSUFFICIENCY [None]
  - WEIGHT INCREASED [None]
